FAERS Safety Report 11222973 (Version 5)
Quarter: 2018Q2

REPORT INFORMATION
  Report Type: Spontaneous
  Country: DE (occurrence: DE)
  Receive Date: 20150626
  Receipt Date: 20180628
  Transmission Date: 20180711
  Serious: Yes (Hospitalization, Other)
  Sender: FDA-Public Use
  Company Number: DE-BAXALTA-2015BAX031186

PATIENT
  Age: 18 Year
  Sex: Male
  Weight: 75 kg

DRUGS (23)
  1. FERRO-SANOL DUODENAL [Concomitant]
     Active Substance: FERROUS GLYCINE SULFATE
     Indication: IRON DEFICIENCY
     Dosage: 100 MG, 2X A DAY
     Route: 048
     Dates: start: 20150209
  2. EPTACOG ALFA [Concomitant]
     Active Substance: COAGULATION FACTOR VIIA RECOMBINANT HUMAN
     Indication: HAEMORRHAGE
  3. CEFUROXIME. [Concomitant]
     Active Substance: CEFUROXIME
     Indication: DEVICE RELATED INFECTION
     Dosage: UNK, AS NEEDED
     Route: 048
     Dates: start: 20141224
  4. DICLOFENAC [Concomitant]
     Active Substance: DICLOFENAC
     Indication: ARTHROPATHY
     Dosage: UNK
     Route: 048
     Dates: start: 201505, end: 201506
  5. METRONIDAZOLE BENZOATE [Concomitant]
     Active Substance: METRONIDAZOLE BENZOATE
     Indication: HELICOBACTER INFECTION
  6. NOVOSEVEN [Concomitant]
     Active Substance: COAGULATION FACTOR VIIA RECOMBINANT HUMAN
     Indication: HAEMORRHAGE
     Dosage: AS NEEDED
     Route: 042
     Dates: start: 20141223
  7. IBUPROFEN. [Concomitant]
     Active Substance: IBUPROFEN
     Indication: ARTHRITIS
  8. ETORICOXIB [Concomitant]
     Active Substance: ETORICOXIB
     Indication: PROPHYLAXIS
  9. ESOMEPRAZOLE MAGNESIUM. [Concomitant]
     Active Substance: ESOMEPRAZOLE MAGNESIUM
     Indication: GASTROINTESTINAL HAEMORRHAGE
  10. BIPERIDEN [Concomitant]
     Active Substance: BIPERIDEN
     Indication: PRODUCT USED FOR UNKNOWN INDICATION
  11. FEIBA NF [Suspect]
     Active Substance: ANTI-INHIBITOR COAGULANT COMPLEX
     Dosage: 7000 IU, 2X A DAY
     Route: 042
     Dates: start: 20150611, end: 20150614
  12. IBUPROFEN. [Concomitant]
     Active Substance: IBUPROFEN
     Indication: ARTHROPATHY
     Dosage: 600 MG, AS NEEDED
     Route: 048
     Dates: start: 20141223
  13. ROCEPHIN [Concomitant]
     Active Substance: CEFTRIAXONE SODIUM
     Indication: DEVICE RELATED INFECTION
     Dosage: UNK, AS NEEDED
     Route: 042
     Dates: start: 20141224
  14. ETORICOXIB [Concomitant]
     Active Substance: ETORICOXIB
     Indication: ARTHRITIS
  15. FERROUS GLYCINE SULFATE [Concomitant]
     Active Substance: FERROUS GLYCINE SULFATE
     Indication: IRON DEFICIENCY
  16. FEIBA NF [Suspect]
     Active Substance: ANTI-INHIBITOR COAGULANT COMPLEX
     Indication: HAEMOPHILIA A WITH ANTI FACTOR VIII
     Dosage: 5000 IU, 3X/DAY:TID
     Route: 042
     Dates: start: 20150608, end: 20150610
  17. CEFTRIAXONE SODIUM. [Concomitant]
     Active Substance: CEFTRIAXONE SODIUM
     Indication: DEVICE RELATED INFECTION
  18. ARCOXIA [Concomitant]
     Active Substance: ETORICOXIB
     Indication: ARTHROPATHY
     Dosage: 90 MG, AS NEEDED
     Route: 048
     Dates: start: 20141223, end: 201601
  19. METOCLOPRAMIDE. [Concomitant]
     Active Substance: METOCLOPRAMIDE
     Indication: PRODUCT USED FOR UNKNOWN INDICATION
  20. FEIBA NF [Suspect]
     Active Substance: ANTI-INHIBITOR COAGULANT COMPLEX
     Indication: PROPHYLAXIS
     Dosage: 4000 IU, 3X A DAY
     Route: 042
     Dates: start: 20150606, end: 20150607
  21. PANTOPRAZOL [Concomitant]
     Active Substance: PANTOPRAZOLE SODIUM
     Indication: ABDOMINAL PAIN UPPER
     Dosage: 40 MG, 2X A DAY
     Route: 048
     Dates: start: 20150209
  22. ETORICOXIB [Concomitant]
     Active Substance: ETORICOXIB
     Indication: ARTHROPATHY
  23. ERYTHROMYCIN. [Concomitant]
     Active Substance: ERYTHROMYCIN
     Indication: PRODUCT USED FOR UNKNOWN INDICATION

REACTIONS (4)
  - Drug hypersensitivity [Not Recovered/Not Resolved]
  - Duodenal ulcer haemorrhage [Recovered/Resolved]
  - Contrast media allergy [Not Recovered/Not Resolved]
  - Dyskinesia [Recovered/Resolved]

NARRATIVE: CASE EVENT DATE: 20150604
